FAERS Safety Report 19396734 (Version 5)
Quarter: 2023Q1

REPORT INFORMATION
  Report Type: Report from Study
  Country: US (occurrence: US)
  Receive Date: 20210610
  Receipt Date: 20230209
  Transmission Date: 20230418
  Serious: No
  Sender: FDA-Public Use
  Company Number: US-IPSEN BIOPHARMACEUTICALS, INC.-2021-14022

PATIENT
  Age: 32 Year
  Sex: Female

DRUGS (5)
  1. SOMATULINE DEPOT [Suspect]
     Active Substance: LANREOTIDE ACETATE
     Indication: Acromegaly
     Route: 058
     Dates: start: 20210318
  2. SOMATULINE DEPOT [Suspect]
     Active Substance: LANREOTIDE ACETATE
     Dosage: 120 MG/0.5 ML
     Route: 058
     Dates: start: 20220223
  3. LIDOCAINE [Concomitant]
     Active Substance: LIDOCAINE
  4. SOMAVERT [Concomitant]
     Active Substance: PEGVISOMANT
     Dosage: 10 MG KIT
  5. SOMAVERT [Concomitant]
     Active Substance: PEGVISOMANT
     Dosage: 20 MG KIT

REACTIONS (14)
  - Abdominal discomfort [Unknown]
  - Nausea [Unknown]
  - Sunburn [Unknown]
  - Feeling abnormal [Recovered/Resolved]
  - Weight increased [Recovered/Resolved]
  - Fatigue [Recovered/Resolved]
  - Haemoglobin decreased [Unknown]
  - Injection site pain [Not Recovered/Not Resolved]
  - Blood iron decreased [Not Recovered/Not Resolved]
  - Lack of application site rotation [Unknown]
  - Drug ineffective [Unknown]
  - Joint swelling [Unknown]
  - Injection site scar [Unknown]
  - Body fat disorder [Unknown]

NARRATIVE: CASE EVENT DATE: 20210101
